FAERS Safety Report 15402141 (Version 1)
Quarter: 2018Q3

REPORT INFORMATION
  Report Type: Spontaneous
  Country: MA (occurrence: MA)
  Receive Date: 20180919
  Receipt Date: 20180919
  Transmission Date: 20181010
  Serious: Yes (Life-Threatening, Hospitalization)
  Sender: FDA-Public Use
  Company Number: MA-PFIZER INC-2018373933

PATIENT
  Age: 27 Year
  Sex: Female

DRUGS (2)
  1. ARTOTEC [Suspect]
     Active Substance: DICLOFENAC SODIUM\MISOPROSTOL
     Indication: ABORTION
     Dosage: 4 TABLETS IN SINGLE DOSE
     Route: 048
     Dates: start: 20150922
  2. ARTOTEC [Suspect]
     Active Substance: DICLOFENAC SODIUM\MISOPROSTOL
     Dosage: 4 TABLETS IN SINGLE DOSE
     Route: 067
     Dates: start: 20150922

REACTIONS (7)
  - Myocardial infarction [Recovered/Resolved]
  - Acute kidney injury [Recovered/Resolved]
  - Sepsis [Recovered/Resolved]
  - Product use in unapproved indication [Recovered/Resolved]
  - Altered state of consciousness [Recovered/Resolved]
  - Headache [Recovered/Resolved]
  - Vomiting [Recovered/Resolved]

NARRATIVE: CASE EVENT DATE: 201509
